FAERS Safety Report 7952446-2 (Version None)
Quarter: 2011Q4

REPORT INFORMATION
  Report Type: 
  Country: None (occurrence: None)
  Receive Date: 20111201
  Receipt Date: 20111125
  Transmission Date: 20120403
  Serious: Yes (Death)
  Sender: FDA-Public Use
  Company Number: RU-GLAXOSMITHKLINE-B0766307A

PATIENT
  Sex: Female

DRUGS (2)
  1. TEGAFUR [Concomitant]
     Indication: BREAST CANCER METASTATIC
     Dates: start: 20101001, end: 20111001
  2. LAPATINIB [Suspect]
     Indication: BREAST CANCER METASTATIC
     Route: 048
     Dates: start: 20101001, end: 20111001

REACTIONS (3)
  - BREAST CANCER [None]
  - CONDITION AGGRAVATED [None]
  - OFF LABEL USE [None]
